FAERS Safety Report 8416336-3 (Version None)
Quarter: 2012Q2

REPORT INFORMATION
  Report Type: 
  Country: None (occurrence: None)
  Receive Date: 20120606
  Receipt Date: 20120528
  Transmission Date: 20120825
  Serious: Yes (Hospitalization)
  Sender: FDA-Public Use
  Company Number: CA-JNJFOC-20120519616

PATIENT
  Sex: Female
  Weight: 64.6 kg

DRUGS (7)
  1. AMITRIPTYLINE HCL [Concomitant]
     Route: 065
  2. ALESSE [Concomitant]
     Route: 065
  3. REMICADE [Suspect]
     Indication: CROHN'S DISEASE
     Dosage: EVERY 8-12 WEEKS
     Route: 042
     Dates: start: 20080101
  4. PENTASA [Concomitant]
     Route: 065
  5. IMURAN [Concomitant]
     Route: 065
  6. BUDESONIDE [Concomitant]
     Route: 065
  7. SCOPOLAMINE [Concomitant]
     Route: 065

REACTIONS (1)
  - GALLBLADDER DISORDER [None]
